FAERS Safety Report 7113083-5 (Version None)
Quarter: 2010Q4

REPORT INFORMATION
  Report Type: 
  Country: None (occurrence: None)
  Receive Date: 20101119
  Receipt Date: 20101110
  Transmission Date: 20110411
  Serious: Yes (Other)
  Sender: FDA-Public Use
  Company Number: US-JNJFOC-20101105197

PATIENT
  Age: 89 Year
  Sex: Female
  Weight: 83.92 kg

DRUGS (8)
  1. EXTRA STRENGTH TYLENOL [Suspect]
     Route: 048
  2. EXTRA STRENGTH TYLENOL [Suspect]
     Indication: HEADACHE
     Dosage: 1 CAPLET ONCE
     Route: 048
  3. BENICAR [Concomitant]
     Indication: BLOOD PRESSURE
  4. PROTONIX [Concomitant]
     Indication: GASTRIC DISORDER
  5. FLORASTOR [Concomitant]
     Indication: MUSCLE SPASMS
  6. FERROUS GLUCONATE [Concomitant]
     Indication: ANAEMIA
     Dosage: USED FOR AWHILE
  7. MULTIPLE VITAMIN [Concomitant]
     Indication: VITAMIN SUPPLEMENTATION
     Dosage: 1 TABLET DAILY FOR YEARS
  8. REFRESH [Concomitant]
     Indication: DRY EYE
     Dosage: 3-4 TIMES A DAY FOR 8 YEARS

REACTIONS (1)
  - LOSS OF CONSCIOUSNESS [None]
